FAERS Safety Report 6423355-5 (Version None)
Quarter: 2009Q4

REPORT INFORMATION
  Report Type: 
  Country: None (occurrence: None)
  Receive Date: 20091102
  Receipt Date: 20091023
  Transmission Date: 20100525
  Serious: Yes (Hospitalization)
  Sender: FDA-Public Use
  Company Number: US-ASTRAZENECA-2009SE22277

PATIENT
  Sex: Female

DRUGS (3)
  1. METOPROLOL SUCCINATE [Suspect]
     Indication: HYPERTENSION
     Route: 048
  2. DIGOXIN [Suspect]
     Indication: SUPRAVENTRICULAR TACHYCARDIA
     Route: 048
  3. DIGOXIN [Suspect]
     Route: 048

REACTIONS (20)
  - ANGINA PECTORIS [None]
  - ARTERITIS [None]
  - ASTHENIA [None]
  - BURN OF INTERNAL ORGANS [None]
  - BURNING SENSATION [None]
  - CARDIOVASCULAR DISORDER [None]
  - DECREASED APPETITE [None]
  - DRUG LEVEL CHANGED [None]
  - DYSURIA [None]
  - HAEMORRHAGE [None]
  - HYPERHIDROSIS [None]
  - HYPERTENSION [None]
  - IMMOBILE [None]
  - MALAISE [None]
  - MUSCLE ATROPHY [None]
  - NON-CARDIAC CHEST PAIN [None]
  - OVERDOSE [None]
  - PAIN IN EXTREMITY [None]
  - RENAL PAIN [None]
  - VENOUS HAEMORRHAGE [None]
